FAERS Safety Report 7343157-5 (Version None)
Quarter: 2011Q1

REPORT INFORMATION
  Report Type: 
  Country: None (occurrence: None)
  Receive Date: 20110310
  Receipt Date: 20110301
  Transmission Date: 20110831
  Serious: No
  Sender: FDA-Public Use
  Company Number: US-JNJFOC-20110301955

PATIENT
  Sex: Female
  Weight: 68.04 kg

DRUGS (5)
  1. KLONOPIN [Concomitant]
     Indication: ANXIETY
     Route: 048
  2. DURAGESIC-50 [Suspect]
     Indication: PAIN
     Dosage: ONCE EVERY 36 TO 72 HOURS
     Route: 062
  3. PROZAC [Concomitant]
     Indication: DEPRESSION
     Route: 048
  4. KLONOPIN [Concomitant]
     Indication: DEPRESSION
     Route: 048
  5. FENTANYL-100 [Suspect]
     Indication: PAIN
     Dosage: 1 EVERY 36 TO 72 HOURS
     Route: 062

REACTIONS (6)
  - NIGHT SWEATS [None]
  - INAPPROPRIATE SCHEDULE OF DRUG ADMINISTRATION [None]
  - WRONG TECHNIQUE IN DRUG USAGE PROCESS [None]
  - MENOPAUSAL SYMPTOMS [None]
  - INSOMNIA [None]
  - PAIN [None]
